FAERS Safety Report 5247272-1 (Version None)
Quarter: 2007Q1

REPORT INFORMATION
  Report Type: 
  Country: None (occurrence: None)
  Receive Date: 20070227
  Receipt Date: 20070214
  Transmission Date: 20070707
  Serious: Yes (Other)
  Sender: FDA-Public Use
  Company Number: PHBS2007RU02938

PATIENT
  Age: 43 Year
  Sex: Female

DRUGS (2)
  1. PIRACETAM [Concomitant]
  2. SANDOSTATIN LAR [Suspect]
     Indication: PITUITARY TUMOUR BENIGN
     Route: 030
     Dates: start: 20060501

REACTIONS (1)
  - VISUAL ACUITY REDUCED [None]
